FAERS Safety Report 16134020 (Version 2)
Quarter: 2019Q2

REPORT INFORMATION
  Report Type: Spontaneous
  Country: US (occurrence: US)
  Receive Date: 20190329
  Receipt Date: 20190430
  Transmission Date: 20190711
  Serious: No
  Sender: FDA-Public Use
  Company Number: US-MYLANLABS-2019M1021799

PATIENT
  Age: 69 Year
  Sex: Female
  Weight: 56 kg

DRUGS (1)
  1. GLATIRAMER ACETATE INJECTION [Suspect]
     Active Substance: GLATIRAMER ACETATE
     Indication: MULTIPLE SCLEROSIS
     Dosage: 40 MILLIGRAM, Q3W
     Route: 058
     Dates: start: 20190305

REACTIONS (2)
  - Product dose omission [Not Recovered/Not Resolved]
  - Drug administered in wrong device [Recovering/Resolving]

NARRATIVE: CASE EVENT DATE: 20190305
